FAERS Safety Report 4808321-5 (Version None)
Quarter: 2005Q4

REPORT INFORMATION
  Report Type: 
  Country: None (occurrence: None)
  Receive Date: 20051021
  Receipt Date: 20051007
  Transmission Date: 20060501
  Serious: Yes (Hospitalization)
  Sender: FDA-Public Use
  Company Number: 2005P1000473

PATIENT
  Age: 80 Year

DRUGS (8)
  1. RETEPLASE (RETEPLASE) [Suspect]
     Indication: ACUTE MYOCARDIAL INFARCTION
     Dosage: IV
     Route: 042
     Dates: start: 20050826, end: 20050826
  2. ABCIXIMAB (ABCIXIMAB) [Suspect]
     Indication: ACUTE MYOCARDIAL INFARCTION
     Dosage: IV
     Route: 042
     Dates: start: 20050826, end: 20050827
  3. ACETYLSALICYLATE [Concomitant]
  4. CALCIUM GLUCONATE [Concomitant]
  5. AMLODIPINE [Concomitant]
  6. PROMOCARD [Concomitant]
  7. ROSUVASTATIN [Concomitant]
  8. CLOPIDOGREL BISULFATE [Concomitant]

REACTIONS (1)
  - GASTROINTESTINAL HAEMORRHAGE [None]
